FAERS Safety Report 12080256 (Version 3)
Quarter: 2016Q3

REPORT INFORMATION
  Report Type: Spontaneous
  Country: FR (occurrence: FR)
  Receive Date: 20160216
  Receipt Date: 20160913
  Transmission Date: 20161109
  Serious: Yes (Death, Life-Threatening, Hospitalization)
  Sender: FDA-Public Use
  Company Number: FR-SA-2016SA027264

PATIENT
  Age: 56 Year
  Sex: Female
  Weight: 83 kg

DRUGS (20)
  1. FEMARA [Concomitant]
     Active Substance: LETROZOLE
     Indication: BREAST CANCER
     Route: 048
     Dates: start: 20110829, end: 20111027
  2. PACLITAXEL. [Suspect]
     Active Substance: PACLITAXEL
     Indication: BREAST CANCER
     Dosage: FORM AND ROUTE- INTRAVENOUS INFUSION
     Dates: start: 20110512, end: 20110512
  3. PACLITAXEL. [Suspect]
     Active Substance: PACLITAXEL
     Indication: BREAST CANCER
     Dosage: FORM AND ROUTE- INTRAVENOUS INFUSION
     Dates: start: 20110609, end: 20110609
  4. PACLITAXEL. [Suspect]
     Active Substance: PACLITAXEL
     Indication: BREAST CANCER
     Dosage: FORM AND ROUTE- INTRAVENOUS INFUSION
     Dates: start: 20110519, end: 20110519
  5. ENDOXAN [Suspect]
     Active Substance: CYCLOPHOSPHAMIDE
     Indication: BREAST CANCER
     Dosage: FORM AND ROUTE- INTRAVENOUS INFUSION
     Dates: start: 20110519, end: 20110519
  6. AROMASIN [Suspect]
     Active Substance: EXEMESTANE
     Indication: BREAST CANCER
     Route: 065
     Dates: start: 20111115, end: 20120403
  7. TAMOXIFEN [Concomitant]
     Active Substance: TAMOXIFEN
     Indication: BREAST CANCER
     Route: 048
     Dates: start: 2011, end: 201109
  8. PACLITAXEL. [Suspect]
     Active Substance: PACLITAXEL
     Indication: BREAST CANCER
     Dosage: FORM AND ROUTE- INTRAVENOUS INFUSION
     Dates: start: 20110526, end: 20110526
  9. ENDOXAN [Suspect]
     Active Substance: CYCLOPHOSPHAMIDE
     Indication: BREAST CANCER
     Dosage: FORM AND ROUTE- INTRAVENOUS INFUSION
     Dates: start: 20110421, end: 20110616
  10. ENDOXAN [Suspect]
     Active Substance: CYCLOPHOSPHAMIDE
     Indication: BREAST CANCER
     Dosage: FORM AND ROUTE- INTRAVENOUS INFUSION
     Dates: start: 20110526, end: 20110526
  11. TAXOTERE [Suspect]
     Active Substance: DOCETAXEL
     Indication: BREAST CANCER
     Route: 042
     Dates: start: 20110421, end: 20110421
  12. PACLITAXEL. [Suspect]
     Active Substance: PACLITAXEL
     Indication: BREAST CANCER
     Dosage: FORM AND ROUTE- INTRAVENOUS INFUSION
     Dates: start: 20110603, end: 20110603
  13. ENDOXAN [Suspect]
     Active Substance: CYCLOPHOSPHAMIDE
     Indication: BREAST CANCER
     Dosage: FORM AND ROUTE- INTRAVENOUS INFUSION
     Dates: start: 20110512, end: 20110512
  14. FEMARA [Suspect]
     Active Substance: LETROZOLE
     Indication: BREAST CANCER
     Route: 048
     Dates: start: 20110829, end: 20111027
  15. PACLITAXEL. [Suspect]
     Active Substance: PACLITAXEL
     Indication: BREAST CANCER
     Dosage: FORM AND ROUTE- INTRAVENOUS INFUSION
     Dates: start: 20110616, end: 20110616
  16. ENDOXAN [Suspect]
     Active Substance: CYCLOPHOSPHAMIDE
     Indication: BREAST CANCER
     Dosage: FORM AND ROUTE- INTRAVENOUS INFUSION
     Dates: start: 20110609, end: 20110609
  17. AUGMENTIN [Concomitant]
     Active Substance: AMOXICILLIN\CLAVULANATE POTASSIUM
     Indication: INFECTION
     Route: 065
     Dates: start: 20110623, end: 20110630
  18. ENDOXAN [Suspect]
     Active Substance: CYCLOPHOSPHAMIDE
     Indication: BREAST CANCER
     Dosage: FORM AND ROUTE- INTRAVENOUS INFUSION
     Dates: start: 20110603, end: 20110603
  19. ENDOXAN [Suspect]
     Active Substance: CYCLOPHOSPHAMIDE
     Indication: BREAST CANCER
     Dosage: FORM AND ROUTE- INTRAVENOUS INFUSION
     Dates: start: 20110616, end: 20110616
  20. TAMOXIFEN [Suspect]
     Active Substance: TAMOXIFEN
     Route: 048
     Dates: start: 20120410, end: 20130910

REACTIONS (6)
  - Skin toxicity [Recovered/Resolved]
  - Toxic skin eruption [Recovering/Resolving]
  - Diarrhoea [Recovered/Resolved]
  - Chronic myelomonocytic leukaemia [Not Recovered/Not Resolved]
  - Bone pain [Recovered/Resolved]
  - Chronic myelomonocytic leukaemia [Fatal]

NARRATIVE: CASE EVENT DATE: 20110421
